FAERS Safety Report 6065123-2 (Version None)
Quarter: 2009Q1

REPORT INFORMATION
  Report Type: 
  Country: None (occurrence: None)
  Receive Date: 20090204
  Receipt Date: 20090126
  Transmission Date: 20090719
  Serious: Yes (Death)
  Sender: FDA-Public Use
  Company Number: US-ELI_LILLY_AND_COMPANY-US200901005484

PATIENT
  Age: 19 Year
  Sex: Male

DRUGS (4)
  1. PROZAC [Suspect]
  2. QUETIAPINE FUMARATE [Concomitant]
  3. SERTRALINE [Concomitant]
  4. DEXTROMETHORPHAN HYDROBROMIDE [Concomitant]

REACTIONS (1)
  - DEATH [None]
